FAERS Safety Report 5261070-4 (Version None)
Quarter: 2007Q1

REPORT INFORMATION
  Report Type: 
  Country: None (occurrence: None)
  Receive Date: 20070309
  Receipt Date: 20070228
  Transmission Date: 20070707
  Serious: Yes (Death, Hospitalization, Other)
  Sender: FDA-Public Use
  Company Number: US-PFIZER INC-2005135070

PATIENT
  Sex: Male

DRUGS (4)
  1. NEURONTIN [Suspect]
     Indication: BACK PAIN
  2. NEURONTIN [Suspect]
     Indication: BIPOLAR DISORDER
  3. ALPRAZOLAM [Suspect]
  4. ALL OTHER THERAPEUTIC PRODUCTS [Suspect]

REACTIONS (7)
  - BACK PAIN [None]
  - COMPLETED SUICIDE [None]
  - DEPRESSION [None]
  - DRUG INEFFECTIVE [None]
  - DRUG TOXICITY [None]
  - OVERDOSE [None]
  - SUBSTANCE ABUSE [None]
